FAERS Safety Report 4493327-9 (Version None)
Quarter: 2004Q4

REPORT INFORMATION
  Report Type: 
  Country: None (occurrence: None)
  Receive Date: 20041102
  Receipt Date: 20041020
  Transmission Date: 20050328
  Serious: Yes (Death, Hospitalization)
  Sender: FDA-Public Use
  Company Number: 2003034801

PATIENT
  Age: 52 Year
  Sex: Male

DRUGS (5)
  1. GEODON [Suspect]
     Indication: PARANOIA
     Dosage: 10 MG (1 IN 1 D), ORAL
     Route: 048
     Dates: start: 20030627, end: 20030801
  2. LITHIUM (LITHIUM) (LITHIUM) [Suspect]
     Indication: ANGER
     Dosage: 900 MG (2 IN 1 D), ORAL
     Route: 048
     Dates: start: 20030301, end: 20030801
  3. LITHIUM (LITHIUM) (LITHIUM) [Suspect]
     Indication: DEPRESSION
     Dosage: 900 MG (2 IN 1 D), ORAL
     Route: 048
     Dates: start: 20030301, end: 20030801
  4. BUPROPION HYDROCHLORIDE [Concomitant]
  5. ANTI-DIABETICS (ANTI-DIABETICS) [Concomitant]

REACTIONS (2)
  - DIABETIC HYPERGLYCAEMIC COMA [None]
  - PARANOIA [None]
